FAERS Safety Report 13577222 (Version 8)
Quarter: 2020Q4

REPORT INFORMATION
  Report Type: Spontaneous
  Country: US (occurrence: US)
  Receive Date: 20170524
  Receipt Date: 20201119
  Transmission Date: 20210113
  Serious: Yes (Hospitalization, Other)
  Sender: FDA-Public Use
  Company Number: US-PFIZER INC-2017225311

PATIENT
  Age: 85 Year
  Sex: Female
  Weight: 55.34 kg

DRUGS (6)
  1. TIKOSYN [Suspect]
     Active Substance: DOFETILIDE
     Indication: ATRIAL FIBRILLATION
     Dosage: 125 UG, 2X/DAY (TWO TIMES A DAY, MORNING AND NIGHT)
     Route: 048
  2. TIKOSYN [Suspect]
     Active Substance: DOFETILIDE
     Dosage: 125 UG, 2X/DAY
     Route: 048
  3. PROTONIX [Concomitant]
     Active Substance: PANTOPRAZOLE SODIUM
     Indication: BARRETT^S OESOPHAGUS
     Dosage: 40 MG, 2X/DAY
     Route: 048
     Dates: start: 2016
  4. PROTONIX [Concomitant]
     Active Substance: PANTOPRAZOLE SODIUM
     Indication: MALLORY-WEISS SYNDROME
     Dosage: 40 MG, 2X/DAY (40MG 1 TABLET BY MOUTH TWICE A DAY)
     Route: 048
  5. PROTONIX [Concomitant]
     Active Substance: PANTOPRAZOLE SODIUM
     Indication: BURN OESOPHAGEAL
     Dosage: 40 MG, UNK
  6. PROTONIX [Concomitant]
     Active Substance: PANTOPRAZOLE SODIUM
     Indication: GASTROINTESTINAL INFECTION

REACTIONS (6)
  - Body height decreased [Unknown]
  - Oesophageal perforation [Unknown]
  - Weight increased [Unknown]
  - Haemorrhage [Unknown]
  - Myocardial infarction [Recovered/Resolved]
  - Cough [Unknown]

NARRATIVE: CASE EVENT DATE: 201904
